FAERS Safety Report 9100050 (Version 1)
Quarter: 2013Q1

REPORT INFORMATION
  Report Type: Spontaneous
  Country: FR (occurrence: FR)
  Receive Date: 20130215
  Receipt Date: 20130215
  Transmission Date: 20140127
  Serious: Yes (Hospitalization)
  Sender: FDA-Public Use
  Company Number: FR-ABBOTT-13P-056-1049694-00

PATIENT
  Age: 40 Year
  Sex: Male

DRUGS (6)
  1. HUMIRA [Suspect]
     Indication: ANKYLOSING SPONDYLITIS
     Route: 058
     Dates: start: 2007
  2. ESOMEPRAZOLE [Concomitant]
     Indication: PRODUCT USED FOR UNKNOWN INDICATION
     Route: 048
  3. FENOFIBRATE [Concomitant]
     Indication: PRODUCT USED FOR UNKNOWN INDICATION
     Route: 048
  4. NEURONTIN [Concomitant]
     Indication: PAIN
     Route: 048
  5. OXYCONTIN [Concomitant]
     Indication: PAIN
     Route: 048
  6. OXYNORM [Concomitant]
     Indication: PAIN
     Route: 048

REACTIONS (16)
  - Lung disorder [Recovered/Resolved]
  - Coma [Recovered/Resolved]
  - Respiratory disorder [Recovered/Resolved]
  - Haemodynamic instability [Recovered/Resolved]
  - Renal failure acute [Recovered/Resolved]
  - Acidosis [Recovered/Resolved]
  - Hypoxia [Recovered/Resolved]
  - Lung disorder [Recovered/Resolved]
  - Pneumonia [Recovered/Resolved]
  - Pyrexia [Recovered/Resolved]
  - Septic shock [Recovered/Resolved]
  - Sepsis [Recovered/Resolved]
  - Pneumococcal infection [Recovered/Resolved]
  - Pseudomonas infection [Recovered/Resolved]
  - Pathogen resistance [Recovered/Resolved]
  - Fungal infection [Recovered/Resolved]
